FAERS Safety Report 15047751 (Version 1)
Quarter: 2018Q2

REPORT INFORMATION
  Report Type: Spontaneous
  Country: CA (occurrence: CA)
  Receive Date: 20180621
  Receipt Date: 20180621
  Transmission Date: 20180711
  Serious: Yes (Disabling)
  Sender: FDA-Public Use
  Company Number: CA-ASTRAZENECA-2018SE78447

PATIENT
  Age: 79 Year
  Sex: Male
  Weight: 67.1 kg

DRUGS (2)
  1. RANITIDINE. [Concomitant]
     Active Substance: RANITIDINE
  2. LOSEC [Suspect]
     Active Substance: OMEPRAZOLE
     Indication: GASTROOESOPHAGEAL REFLUX DISEASE
     Route: 048

REACTIONS (5)
  - Dyspepsia [Unknown]
  - Asthma [Unknown]
  - Condition aggravated [Unknown]
  - Flatulence [Unknown]
  - Gastrooesophageal reflux disease [Unknown]
